FAERS Safety Report 5336432-7 (Version None)
Quarter: 2007Q2

REPORT INFORMATION
  Report Type: 
  Country: None (occurrence: None)
  Receive Date: 20070523
  Receipt Date: 20070511
  Transmission Date: 20071010
  Serious: Yes (Death, Other)
  Sender: FDA-Public Use
  Company Number: 2007JP002102

PATIENT
  Age: 51 Year
  Sex: Male

DRUGS (2)
  1. PROGRAF [Suspect]
     Indication: STEM CELL TRANSPLANT
  2. STEROID INJECTION [Concomitant]

REACTIONS (6)
  - ASPERGILLOSIS [None]
  - FUNGAL INFECTION [None]
  - RENAL IMPAIRMENT [None]
  - RETINITIS [None]
  - RETINOPATHY [None]
  - THROMBOTIC MICROANGIOPATHY [None]
